FAERS Safety Report 7269407-1 (Version None)
Quarter: 2011Q1

REPORT INFORMATION
  Report Type: 
  Country: None (occurrence: None)
  Receive Date: 20110202
  Receipt Date: 20110124
  Transmission Date: 20110831
  Serious: Yes (Other)
  Sender: FDA-Public Use
  Company Number: US-NOVOPROD-322096

PATIENT
  Sex: Male

DRUGS (4)
  1. KEPPRA [Concomitant]
     Indication: CONVULSION
  2. LAMICTAL [Concomitant]
     Indication: CONVULSION
  3. TRILEPTAL [Concomitant]
     Indication: CONVULSION
  4. VICTOZA [Suspect]
     Indication: PRODUCT USED FOR UNKNOWN INDICATION
     Dosage: UNK
     Route: 058

REACTIONS (1)
  - CONVULSION [None]
